FAERS Safety Report 5289849-3 (Version None)
Quarter: 2007Q2

REPORT INFORMATION
  Report Type: 
  Country: None (occurrence: None)
  Receive Date: 20070406
  Receipt Date: 20070403
  Transmission Date: 20071010
  Serious: Yes (Hospitalization)
  Sender: FDA-Public Use
  Company Number: AU-SANOFI-SYNTHELABO-A01200702661

PATIENT
  Sex: Male

DRUGS (2)
  1. STILNOX [Suspect]
     Dosage: UNK
     Route: 065
  2. ALCOHOL [Concomitant]
     Dosage: UNK
     Route: 048

REACTIONS (2)
  - FALL [None]
  - MULTIPLE INJURIES [None]
